FAERS Safety Report 9467712 (Version 1)
Quarter: 2013Q3

REPORT INFORMATION
  Report Type: Spontaneous
  Country: DK (occurrence: DK)
  Receive Date: 20130821
  Receipt Date: 20130821
  Transmission Date: 20140515
  Serious: Yes (Life-Threatening, Hospitalization)
  Sender: FDA-Public Use
  Company Number: DK-UCBSA-095860

PATIENT
  Age: 82 Year
  Sex: Female

DRUGS (5)
  1. CIMZIA [Suspect]
     Indication: RHEUMATOID ARTHRITIS
     Dosage: DOSE: 400 MG EVERY 14 DAYS, STRENGTH: 200 MG
     Route: 058
     Dates: start: 20130522, end: 20130716
  2. METHOTREXAT [Concomitant]
     Indication: RHEUMATOID ARTHRITIS
     Dates: start: 20090110
  3. FOLINSYRE [Concomitant]
  4. ALENDRONAT ARROW [Concomitant]
  5. PREDNISOLON [Concomitant]

REACTIONS (3)
  - Sepsis [Recovering/Resolving]
  - Pneumonia [Unknown]
  - Localised infection [Unknown]
